FAERS Safety Report 21531233 (Version 1)
Quarter: 2022Q4

REPORT INFORMATION
  Report Type: Spontaneous
  Country: US (occurrence: None)
  Receive Date: 20221030
  Receipt Date: 20221030
  Transmission Date: 20230113
  Serious: No
  Sender: FDA-Public Use
  Company Number: None

PATIENT
  Age: 25 Year
  Sex: Female
  Weight: 65.7 kg

DRUGS (1)
  1. ELURYNG [Suspect]
     Active Substance: ETHINYL ESTRADIOL\ETONOGESTREL
     Indication: Contraception
     Dates: start: 20221016, end: 20221030

REACTIONS (3)
  - Device breakage [None]
  - Vaginal haemorrhage [None]
  - Vulvovaginal pain [None]

NARRATIVE: CASE EVENT DATE: 20221030
